FAERS Safety Report 23666104 (Version 2)
Quarter: 2024Q2

REPORT INFORMATION
  Report Type: Spontaneous
  Country: US (occurrence: US)
  Receive Date: 20240324
  Receipt Date: 20240406
  Transmission Date: 20240716
  Serious: Yes (Hospitalization, Other)
  Sender: FDA-Public Use
  Company Number: US-MLMSERVICE-20240305-4868918-1

PATIENT
  Age: 40 Year
  Sex: Female
  Weight: 54.5 kg

DRUGS (5)
  1. PAROXETINE [Interacting]
     Active Substance: PAROXETINE
     Indication: Anxiety
     Dosage: 20 MILLIGRAM, ONCE A DAY FOR 5 MO
     Route: 048
     Dates: start: 20220613, end: 20221129
  2. PAROXETINE [Interacting]
     Active Substance: PAROXETINE
     Indication: Depression
  3. BUDESONIDE [Interacting]
     Active Substance: BUDESONIDE
     Indication: Colitis microscopic
     Dosage: 9 MILLIGRAM, ONCE A DAY (FOR 3 MO)
     Route: 065
     Dates: start: 20220825, end: 20221103
  4. TRAZODONE [Interacting]
     Active Substance: TRAZODONE HYDROCHLORIDE
     Indication: Insomnia
     Dosage: 100 MILLIGRAM, ONCE A DAY (NIGHTLY  (FOR 5 MO))
     Route: 048
     Dates: start: 20220613, end: 20221129
  5. LISDEXAMFETAMINE [Interacting]
     Active Substance: LISDEXAMFETAMINE
     Indication: Attention deficit hyperactivity disorder
     Dosage: 10 MILLIGRAM, ONCE A DAY FOR 4 MO
     Route: 048
     Dates: start: 20220711, end: 20221129

REACTIONS (4)
  - Hepatic encephalopathy [Recovered/Resolved]
  - Drug-induced liver injury [Recovered/Resolved]
  - Acute hepatic failure [Recovered/Resolved]
  - Drug interaction [Recovered/Resolved]

NARRATIVE: CASE EVENT DATE: 20220101
